FAERS Safety Report 12064588 (Version 5)
Quarter: 2016Q2

REPORT INFORMATION
  Report Type: Spontaneous
  Country: JP (occurrence: JP)
  Receive Date: 20160210
  Receipt Date: 20160523
  Transmission Date: 20160815
  Serious: Yes (Other)
  Sender: FDA-Public Use
  Company Number: JP-GILEAD-2016-0195269

PATIENT
  Age: 72 Year
  Sex: Female

DRUGS (6)
  1. SOVALDI [Suspect]
     Active Substance: SOFOSBUVIR
     Indication: CHRONIC HEPATITIS C
     Dosage: 400 MG, UNK
     Route: 048
     Dates: start: 20160113, end: 20160204
  2. SOVALDI [Suspect]
     Active Substance: SOFOSBUVIR
     Dosage: 400 MG, UNK
     Route: 048
     Dates: start: 20160217
  3. REBETOL [Suspect]
     Active Substance: RIBAVIRIN
     Indication: CHRONIC HEPATITIS C
     Dosage: 3 DF, UNK
     Route: 048
     Dates: start: 20160113, end: 20160204
  4. WARKMIN [Concomitant]
     Active Substance: ALFACALCIDOL
     Dosage: 1.0 UG, UNK
     Route: 048
  5. ASPARA-CA [Concomitant]
     Active Substance: CALCIUM ASPARTATE
     Dosage: 2 DF, UNK
     Route: 048
  6. REBETOL [Suspect]
     Active Substance: RIBAVIRIN
     Dosage: 1 DF, QD
     Route: 048
     Dates: start: 20160217

REACTIONS (1)
  - Renal impairment [Recovered/Resolved]

NARRATIVE: CASE EVENT DATE: 20160127
